FAERS Safety Report 25597236 (Version 1)
Quarter: 2025Q3

REPORT INFORMATION
  Report Type: Spontaneous
  Country: US (occurrence: US)
  Receive Date: 20250723
  Receipt Date: 20250723
  Transmission Date: 20251021
  Serious: No
  Sender: PROGENICS PHARMACEUTICALS
  Company Number: US-LANTHEUS MEDICAL IMAGING-LMI-2024-01012

PATIENT
  Age: 73 Year
  Sex: Male
  Weight: 92 kg

DRUGS (1)
  1. PYLARIFY [Suspect]
     Active Substance: PIFLUFOLASTAT F-18
     Indication: Positron emission tomogram
     Route: 042
     Dates: start: 20240809, end: 20240809

REACTIONS (1)
  - Dizziness [Recovered/Resolved]

NARRATIVE: CASE EVENT DATE: 20240809
